FAERS Safety Report 22005415 (Version 16)
Quarter: 2024Q2

REPORT INFORMATION
  Report Type: Spontaneous
  Country: CZ (occurrence: CZ)
  Receive Date: 20230217
  Receipt Date: 20240402
  Transmission Date: 20240716
  Serious: Yes (Hospitalization, Other)
  Sender: FDA-Public Use
  Company Number: CZ-MYLANLABS-2023M1017858

PATIENT
  Age: 53 Year
  Sex: Female

DRUGS (23)
  1. TRAMADOL [Suspect]
     Active Substance: TRAMADOL\TRAMADOL HYDROCHLORIDE
     Indication: Migraine without aura
     Dosage: UNK
     Route: 065
  2. TRAMADOL [Suspect]
     Active Substance: TRAMADOL\TRAMADOL HYDROCHLORIDE
     Dosage: GRADUALLY INCREASED
     Route: 048
  3. IBUPROFEN [Suspect]
     Active Substance: IBUPROFEN
     Indication: Migraine without aura
     Dosage: UNK
     Route: 065
  4. IBUPROFEN [Suspect]
     Active Substance: IBUPROFEN
     Dosage: GRADUALLY INCREASED
     Route: 048
  5. METOPROLOL [Suspect]
     Active Substance: METOPROLOL
     Indication: Migraine
     Dosage: 200 MG, QD (100 MG, BID (2X100 MG A DAY))
     Route: 065
  6. METOPROLOL [Suspect]
     Active Substance: METOPROLOL
     Indication: Migraine without aura
     Dosage: 100 MG, QD (50 MG, BID (2X50 MG))
     Route: 065
  7. GABAPENTIN [Suspect]
     Active Substance: GABAPENTIN
     Indication: Migraine without aura
     Dosage: 1500 MG, QD (500 MG, TID (3X500 MG A DAY))
     Route: 065
  8. LEVETIRACETAM [Suspect]
     Active Substance: LEVETIRACETAM
     Indication: Migraine without aura
     Dosage: UNK
     Route: 065
  9. LEVETIRACETAM [Suspect]
     Active Substance: LEVETIRACETAM
     Indication: Migraine
     Dosage: UNK
     Route: 065
  10. LEVETIRACETAM [Suspect]
     Active Substance: LEVETIRACETAM
     Dosage: UNK
     Route: 065
  11. TOPIRAMATE [Suspect]
     Active Substance: TOPIRAMATE
     Indication: Migraine without aura
     Dosage: UNK
     Route: 048
  12. DIHYDROERGOTAMINE [Suspect]
     Active Substance: DIHYDROERGOTAMINE
     Indication: Migraine
     Dosage: UNK
     Route: 042
  13. DIHYDROERGOTAMINE [Suspect]
     Active Substance: DIHYDROERGOTAMINE
     Indication: Migraine without aura
     Dosage: UNK, GRADUALLY INCREASED
     Route: 042
  14. TOPAMAX [Suspect]
     Active Substance: TOPIRAMATE
     Indication: Migraine without aura
     Dosage: UNK
     Route: 048
  15. TOPAMAX [Suspect]
     Active Substance: TOPIRAMATE
     Indication: Migraine
  16. VALPROATE SODIUM [Suspect]
     Active Substance: VALPROATE SODIUM
     Indication: Migraine without aura
     Dosage: 300 MILLIGRAM, QD, 300 MILLIGRAM, QD (1X/DAY)
     Route: 065
  17. VALPROATE SODIUM [Suspect]
     Active Substance: VALPROATE SODIUM
     Indication: Prophylaxis
     Dosage: 900MG,QD, UP TO 3X300 MG
     Route: 065
  18. AMITRIPTYLINE [Suspect]
     Active Substance: AMITRIPTYLINE
     Indication: Migraine without aura
     Dosage: 25 MILLIGRAM, QD (25 MG A DAY)
     Route: 065
  19. AMITRIPTYLINE [Suspect]
     Active Substance: AMITRIPTYLINE
     Indication: Migraine
  20. OXETORONE [Concomitant]
     Active Substance: OXETORONE
     Indication: Migraine without aura
     Dosage: UNK
     Route: 065
  21. FLUNARIZINE [Concomitant]
     Active Substance: FLUNARIZINE
     Indication: Migraine without aura
     Dosage: UNK
     Route: 065
  22. VALPROATE SODIUM [Concomitant]
     Active Substance: VALPROATE SODIUM
     Indication: Migraine without aura
     Dosage: 300 MILLIGRAM, QD, 300 MILLIGRAM, QD (1X/DAY)
     Route: 065
  23. VALPROATE SODIUM [Concomitant]
     Active Substance: VALPROATE SODIUM
     Indication: Prophylaxis

REACTIONS (14)
  - Loss of consciousness [Recovered/Resolved]
  - Circulatory collapse [Unknown]
  - Syncope [Recovered/Resolved]
  - Hypotension [Recovered/Resolved]
  - Drug abuse [Recovered/Resolved]
  - Drug dependence [Unknown]
  - Toxicity to various agents [Recovered/Resolved]
  - Withdrawal syndrome [Recovered/Resolved]
  - Drug intolerance [Recovered/Resolved]
  - Off label use [Unknown]
  - Intentional product misuse [Unknown]
  - Therapeutic product effect incomplete [Recovered/Resolved]
  - Drug ineffective [Recovered/Resolved]
  - Overdose [Unknown]
